FAERS Safety Report 6137803-1 (Version None)
Quarter: 2009Q1

REPORT INFORMATION
  Report Type: 
  Country: None (occurrence: None)
  Receive Date: 20090331
  Receipt Date: 20090324
  Transmission Date: 20090719
  Serious: Yes (Other)
  Sender: FDA-Public Use
  Company Number: JP-JNJFOC-20090307000

PATIENT
  Age: 73 Year

DRUGS (4)
  1. RISPERDAL [Suspect]
     Indication: DRUG USE FOR UNKNOWN INDICATION
     Dosage: 1 ML AT BEDTIME
     Route: 048
  2. ZOLPIDEM TARTRATE [Concomitant]
     Route: 065
  3. ZOPICLONE [Concomitant]
     Route: 065
  4. LEVOMEPROMAZINE MALEATE [Concomitant]
     Route: 065

REACTIONS (2)
  - HYPONATRAEMIA [None]
  - IMMOBILE [None]
